FAERS Safety Report 16672373 (Version 1)
Quarter: 2019Q3

REPORT INFORMATION
  Report Type: Spontaneous
  Country: NL (occurrence: NL)
  Receive Date: 20190806
  Receipt Date: 20190806
  Transmission Date: 20191004
  Serious: Yes (Other)
  Sender: FDA-Public Use
  Company Number: NL-ACCORD-150407

PATIENT
  Age: 79 Year
  Sex: Male
  Weight: 69 kg

DRUGS (6)
  1. CALCIUM CARBONATE/COLECALCIFEROL [Concomitant]
     Dosage: STRENGTH: 1.25 G / 800 IU; 1DD1
  2. LACTULOSE. [Concomitant]
     Active Substance: LACTULOSE
     Dosage: STRENGTH: 670 MG/ML; 2DD15ML
  3. OMEPRAZOLE. [Concomitant]
     Active Substance: OMEPRAZOLE
     Dosage: STRENGTH: 40 MG; 1DD1
  4. BENSERAZIDE/LEVODOPA [Concomitant]
     Dosage: STRENGTH: 100/25 MG; 3DD2
  5. QUETIAPINE. [Suspect]
     Active Substance: QUETIAPINE
     Indication: DELUSION
     Dosage: STRENGTH: 12.5 MG
     Dates: start: 20190301, end: 20190618
  6. RIVASTIGMINE/RIVASTIGMINE TARTRATE [Concomitant]
     Dosage: STRENGTH: 9.5 MG / 24H

REACTIONS (1)
  - Pancytopenia [Recovered/Resolved]

NARRATIVE: CASE EVENT DATE: 20190617
